FAERS Safety Report 7395606-4 (Version None)
Quarter: 2011Q2

REPORT INFORMATION
  Report Type: 
  Country: None (occurrence: None)
  Receive Date: 20110405
  Receipt Date: 20110331
  Transmission Date: 20111010
  Serious: Yes (Other)
  Sender: FDA-Public Use
  Company Number: CH-PFIZER INC-2010117304

PATIENT
  Sex: Female
  Weight: 54 kg

DRUGS (3)
  1. STILNOX [Concomitant]
     Dosage: 10 MG, 1X/DAY
     Dates: start: 20010101, end: 20100304
  2. ZOLOFT [Suspect]
     Dosage: 75 MG, 1X/DAY
     Route: 048
     Dates: start: 20010122
  3. LEXOTANIL [Concomitant]
     Dosage: 12 MG, 1X/DAY
     Dates: start: 20010101

REACTIONS (4)
  - FEMALE SEXUAL AROUSAL DISORDER [None]
  - PARAESTHESIA [None]
  - VULVOVAGINAL PAIN [None]
  - PELVIC PAIN [None]
